FAERS Safety Report 21989882 (Version 1)
Quarter: 2023Q1

REPORT INFORMATION
  Report Type: Spontaneous
  Country: US (occurrence: None)
  Receive Date: 20230213
  Receipt Date: 20230213
  Transmission Date: 20230417
  Serious: Yes (Hospitalization)
  Sender: FDA-Public Use
  Company Number: None

PATIENT
  Age: 78 Year
  Sex: Female

DRUGS (9)
  1. AMBRISENTAN [Suspect]
     Active Substance: AMBRISENTAN
  2. CULTURELLE [Concomitant]
  3. PHYTONADIONE [Concomitant]
  4. NYSTATIN TOP POWDER [Concomitant]
  5. MELATONIN [Concomitant]
     Active Substance: MELATONIN
  6. ASTELIN [Concomitant]
     Active Substance: AZELASTINE HYDROCHLORIDE
  7. LIDOCAIN TOP CREAM [Concomitant]
  8. FLONASE [Concomitant]
  9. ASPIRIN [Concomitant]

REACTIONS (4)
  - Confusional state [None]
  - Acute respiratory failure [None]
  - Influenza [None]
  - Pneumonia viral [None]

NARRATIVE: CASE EVENT DATE: 20230124
